FAERS Safety Report 19086435 (Version 4)
Quarter: 2021Q2

REPORT INFORMATION
  Report Type: Spontaneous
  Country: US (occurrence: US)
  Receive Date: 20210402
  Receipt Date: 20210517
  Transmission Date: 20210717
  Serious: No
  Sender: FDA-Public Use
  Company Number: US-GLAXOSMITHKLINE-US2021AMR072089

PATIENT
  Age: 51 Year
  Sex: Female

DRUGS (7)
  1. ZEJULA [Suspect]
     Active Substance: NIRAPARIB
     Indication: OVARIAN CANCER
     Dosage: 300 MG, QD
     Dates: start: 20210309, end: 20210316
  2. ZEJULA [Suspect]
     Active Substance: NIRAPARIB
     Dosage: 2 DF (CAPSULE), QD
     Dates: end: 20210324
  3. ZEJULA [Suspect]
     Active Substance: NIRAPARIB
     Dosage: 1 DF (CAPSULE), QD
  4. ZEJULA [Suspect]
     Active Substance: NIRAPARIB
     Indication: FALLOPIAN TUBE CANCER
     Dosage: 300 MG, QD
     Route: 048
     Dates: start: 20210201
  5. ZEJULA [Suspect]
     Active Substance: NIRAPARIB
     Dosage: 1 DF (CAPSULE), QD
  6. GABAPENTIN. [Concomitant]
     Active Substance: GABAPENTIN
     Indication: PRODUCT USED FOR UNKNOWN INDICATION
     Dosage: UNK
  7. PRILOSEC [Concomitant]
     Active Substance: OMEPRAZOLE MAGNESIUM
     Indication: PRODUCT USED FOR UNKNOWN INDICATION
     Dosage: UNK

REACTIONS (9)
  - Restless legs syndrome [Unknown]
  - Hot flush [Not Recovered/Not Resolved]
  - Blood pressure increased [Unknown]
  - Hypertension [Recovered/Resolved]
  - Product dose omission issue [Unknown]
  - Night sweats [Not Recovered/Not Resolved]
  - Insomnia [Unknown]
  - Constipation [Not Recovered/Not Resolved]
  - Arthralgia [Unknown]

NARRATIVE: CASE EVENT DATE: 20210315
